FAERS Safety Report 17650757 (Version 2)
Quarter: 2020Q2

REPORT INFORMATION
  Report Type: Spontaneous
  Country: KR (occurrence: KR)
  Receive Date: 20200409
  Receipt Date: 20200413
  Transmission Date: 20200713
  Serious: Yes (Hospitalization, Other)
  Sender: FDA-Public Use
  Company Number: KR-PFIZER INC-2020144784

PATIENT
  Age: 45 Year
  Sex: Female

DRUGS (2)
  1. IRINOTECAN HCL [Suspect]
     Active Substance: IRINOTECAN HYDROCHLORIDE
     Indication: OVARIAN CLEAR CELL CARCINOMA
     Dosage: ON DAYS 1, 8, AND 15
  2. CISPLATIN. [Suspect]
     Active Substance: CISPLATIN
     Indication: OVARIAN CLEAR CELL CARCINOMA
     Dosage: ON DAY 1

REACTIONS (3)
  - Inappropriate antidiuretic hormone secretion [Recovered/Resolved]
  - Off label use [Unknown]
  - Product use in unapproved indication [Unknown]
